FAERS Safety Report 10009351 (Version 2)
Quarter: 2014Q1

REPORT INFORMATION
  Report Type: Spontaneous
  Country: US (occurrence: US)
  Receive Date: 20140313
  Receipt Date: 20140313
  Transmission Date: 20141002
  Serious: No
  Sender: FDA-Public Use
  Company Number: US-GILEAD-2013-0072466

PATIENT
  Sex: Female

DRUGS (2)
  1. LETAIRIS [Suspect]
     Indication: SCOLIOSIS
     Dosage: 5 MG, UNK
     Dates: start: 20130313
  2. LETAIRIS [Suspect]
     Indication: PULMONARY HYPERTENSION
     Dosage: 5 MG, QD
     Dates: start: 20130403

REACTIONS (10)
  - Diarrhoea [Unknown]
  - Musculoskeletal stiffness [Unknown]
  - Haemoptysis [Unknown]
  - Epistaxis [Unknown]
  - Headache [Unknown]
  - Local swelling [Unknown]
  - Nasal congestion [Unknown]
  - Swelling [Unknown]
  - Oedema [Unknown]
  - Oedema peripheral [Unknown]
